FAERS Safety Report 6581107-X (Version None)
Quarter: 2010Q1

REPORT INFORMATION
  Report Type: 
  Country: None (occurrence: None)
  Receive Date: 20100215
  Receipt Date: 20100203
  Transmission Date: 20100710
  Serious: Yes (Other)
  Sender: FDA-Public Use
  Company Number: PHHY2010CA04968

PATIENT
  Sex: Female

DRUGS (3)
  1. CLOZARIL [Suspect]
     Indication: SCHIZOPHRENIA
     Dosage: 400 MG, UNK
     Route: 048
     Dates: start: 20011218
  2. CLOZARIL [Suspect]
     Indication: PSYCHOTIC DISORDER
  3. CIPRALEX [Concomitant]
     Dosage: 70 MG ONCE DAILY
     Route: 048

REACTIONS (4)
  - DIARRHOEA [None]
  - DYSPHAGIA [None]
  - GASTRIC BYPASS [None]
  - NAUSEA [None]
